FAERS Safety Report 8486448-7 (Version None)
Quarter: 2012Q3

REPORT INFORMATION
  Report Type: 
  Country: None (occurrence: None)
  Receive Date: 20120703
  Receipt Date: 20120618
  Transmission Date: 20120928
  Serious: Yes (Other)
  Sender: FDA-Public Use
  Company Number: US-WATSON-2012-11245

PATIENT
  Age: 27 Year
  Sex: Female

DRUGS (1)
  1. PREDNISONE TAB [Suspect]
     Indication: MYASTHENIA GRAVIS
     Dosage: 60 MG, DAILY
     Route: 065
     Dates: start: 20100301

REACTIONS (2)
  - MYASTHENIA GRAVIS [None]
  - ASTHENIA [None]
